FAERS Safety Report 4672607-8 (Version None)
Quarter: 2005Q2

REPORT INFORMATION
  Report Type: 
  Country: None (occurrence: None)
  Receive Date: 20050524
  Receipt Date: 20050517
  Transmission Date: 20051028
  Serious: Yes (Hospitalization)
  Sender: FDA-Public Use
  Company Number: CZ-GLAXOSMITHKLINE-B0381995A

PATIENT
  Age: 18 Year
  Sex: Female

DRUGS (3)
  1. AUGMENTIN '125' [Suspect]
     Indication: BRONCHITIS ACUTE
     Dosage: 1G PER DAY
     Route: 048
     Dates: start: 20050503, end: 20050503
  2. BROMOHEXINE [Concomitant]
  3. SALBUTAMOL [Concomitant]

REACTIONS (4)
  - C-REACTIVE PROTEIN INCREASED [None]
  - EXANTHEM [None]
  - PRURITUS [None]
  - TREMOR [None]
